FAERS Safety Report 4614104-1 (Version None)
Quarter: 2005Q1

REPORT INFORMATION
  Report Type: 
  Country: None (occurrence: None)
  Receive Date: 20050316
  Receipt Date: 20050316
  Transmission Date: 20050727
  Serious: Yes (Hospitalization)
  Sender: FDA-Public Use
  Company Number: MEDI_0002993

PATIENT
  Sex: Male

DRUGS (2)
  1. ETHYOL [Suspect]
     Indication: RADIOTHERAPY
     Dosage: 500 MG, SUBCUTANEOUS
     Route: 058
  2. RADIATION THERAPY [Concomitant]

REACTIONS (4)
  - INJECTION SITE REACTION [None]
  - PYREXIA [None]
  - RASH GENERALISED [None]
  - URTICARIA [None]
